FAERS Safety Report 9169654 (Version 1)
Quarter: 2013Q1

REPORT INFORMATION
  Report Type: Report from Study
  Country: US (occurrence: US)
  Receive Date: 20130318
  Receipt Date: 20130318
  Transmission Date: 20140127
  Serious: Yes (Other)
  Sender: FDA-Public Use
  Company Number: US-ROCHE-660741

PATIENT
  Sex: 0

DRUGS (7)
  1. BEVACIZUMAB [Suspect]
     Indication: METASTASES TO LIVER
     Dosage: ON DAY 1 OF 28 DAY CYCLE
     Route: 042
  2. HEPARIN SODIUM [Suspect]
     Indication: PRODUCT USED FOR UNKNOWN INDICATION
     Dosage: 3000 UNITS ON DAY ONE
     Route: 050
  3. 5-FLUOROURACIL [Suspect]
     Indication: METASTASES TO LIVER
     Dosage: 900, 1,125, 1,400, AND 1,750 MG/M2 AS CONTINUOUS HAI INFUSION OVER 24 H (DAYS 1-2), (BOLUS 300 TO 40
     Route: 042
  4. CETUXIMAB [Suspect]
     Indication: METASTASES TO LIVER
     Dosage: FROM 250 TO 500 MG/M2 IV (LOADING)
     Route: 042
  5. CETUXIMAB [Suspect]
     Dosage: 125 TO 250 MG/M2 IV (MAINTENANCE) (DAY 1)
     Route: 042
  6. LEUCOVORIN [Suspect]
     Indication: METASTASES TO LIVER
     Dosage: DAYS 1-2
     Route: 042
  7. OXALIPLATIN [Suspect]
     Indication: METASTASES TO LIVER
     Dosage: HEPATIC ARTERIAL INFUSION OVER TWO HOURS ON DAY ONE OF EACH 21 DAY CYCLE
     Route: 065

REACTIONS (13)
  - Transaminases increased [Unknown]
  - Hypokalaemia [Unknown]
  - Fatigue [Unknown]
  - Hyperbilirubinaemia [Unknown]
  - Hyperuricaemia [Unknown]
  - Constipation [Unknown]
  - Alanine aminotransferase abnormal [Unknown]
  - Diarrhoea [Unknown]
  - Hyperkalaemia [Unknown]
  - Thrombocytopenia [Unknown]
  - Hyperglycaemia [Unknown]
  - Neutropenia [Unknown]
  - Anaemia [Unknown]
